FAERS Safety Report 7751040-6 (Version None)
Quarter: 2011Q3

REPORT INFORMATION
  Report Type: 
  Country: None (occurrence: None)
  Receive Date: 20110914
  Receipt Date: 20110902
  Transmission Date: 20111222
  Serious: Yes (Hospitalization)
  Sender: FDA-Public Use
  Company Number: ES-CELGENEUS-144-21880-11070641

PATIENT
  Sex: Male

DRUGS (17)
  1. AMLODIPINE [Concomitant]
     Indication: HYPERTENSION
     Route: 065
  2. SENNOSIDES A + B [Concomitant]
     Indication: CONSTIPATION
     Route: 065
  3. MICRALAX [Concomitant]
     Indication: CONSTIPATION
     Route: 065
  4. MORPHINE SULFATE [Concomitant]
     Indication: PAIN
     Route: 065
  5. ACETAMINOPHEN [Concomitant]
     Indication: PAIN
     Route: 065
  6. SEPTRA [Concomitant]
     Route: 065
  7. OMEPRAZOLE [Concomitant]
     Dosage: 20 MILLIGRAM
     Route: 065
  8. REVLIMID [Suspect]
     Indication: MULTIPLE MYELOMA
     Dosage: D 1-21 OUT OF 28
     Route: 048
     Dates: start: 20101221, end: 20110412
  9. PRIMPERAN TAB [Concomitant]
     Indication: NAUSEA
     Route: 065
  10. NYSTATIN [Concomitant]
     Route: 065
  11. DURAGESIC-100 [Concomitant]
     Route: 065
  12. FOSRENOL [Concomitant]
     Route: 065
  13. NOLOTIL [Concomitant]
     Indication: PAIN
     Route: 065
  14. LACTULOSE [Concomitant]
     Indication: CONSTIPATION
     Route: 065
  15. PRIMPERAN TAB [Concomitant]
     Indication: VOMITING
  16. CARIAX [Concomitant]
     Route: 065
  17. BISOPROLOL FUMARATE [Concomitant]
     Route: 065

REACTIONS (3)
  - NEUTROPENIA [None]
  - ORAL CANDIDIASIS [None]
  - LOBAR PNEUMONIA [None]
